FAERS Safety Report 17162447 (Version 1)
Quarter: 2019Q4

REPORT INFORMATION
  Report Type: Other
  Country: GR (occurrence: GR)
  Receive Date: 20191217
  Receipt Date: 20191217
  Transmission Date: 20200122
  Serious: Yes (Other)
  Sender: FDA-Public Use
  Company Number: GR-REGULIS-2077884

PATIENT
  Age: 76 Year
  Sex: Male

DRUGS (1)
  1. METHYLENE BLUE. [Suspect]
     Active Substance: METHYLENE BLUE
     Indication: DIAGNOSTIC PROCEDURE

REACTIONS (6)
  - Tissue discolouration [Unknown]
  - Gastrointestinal wall thickening [Unknown]
  - Suture rupture [Unknown]
  - Gastrointestinal necrosis [Unknown]
  - Off label use [Unknown]
  - Peritonitis [Unknown]
